FAERS Safety Report 5318433-8 (Version None)
Quarter: 2007Q2

REPORT INFORMATION
  Report Type: 
  Country: None (occurrence: None)
  Receive Date: 20070501
  Receipt Date: 20070417
  Transmission Date: 20071010
  Serious: Yes (Hospitalization)
  Sender: FDA-Public Use
  Company Number: CLOF-10507

PATIENT
  Age: 19 Year
  Sex: Male
  Weight: 74.2 kg

DRUGS (12)
  1. CLOFARABINE. MFR: GENZYME [Suspect]
     Indication: ACUTE LYMPHOCYTIC LEUKAEMIA
     Dosage: 78 MG QD X 5 IV
     Route: 042
     Dates: start: 20070411, end: 20070411
  2. ETOPOSIDE [Suspect]
     Indication: ACUTE LYMPHOCYTIC LEUKAEMIA
     Dosage: 196 MG QD X 5 IV
     Route: 042
     Dates: start: 20070411, end: 20070411
  3. CYCLOPHOSPHAMIDE [Suspect]
     Indication: ACUTE LYMPHOCYTIC LEUKAEMIA
     Dosage: 860 MG QD X 5 V
     Route: 042
     Dates: start: 20070411, end: 20070411
  4. ALLOPURINOL [Concomitant]
  5. AMPHETAMINE AND DEXTROAMPHETAMINE SALTS [Concomitant]
  6. DAPSONE [Concomitant]
  7. DOCUSATE [Concomitant]
  8. ESCITALOPRAM OXALATE [Concomitant]
  9. LABETALOL HCL [Concomitant]
  10. RANITIDINE [Concomitant]
  11. MAGNESIUM HYDROXIDE TAB [Concomitant]
  12. CALCIUM CARBONATE [Concomitant]

REACTIONS (18)
  - BACTERIAL INFECTION [None]
  - BLOOD CULTURE POSITIVE [None]
  - BLOOD PHOSPHORUS INCREASED [None]
  - CHOLELITHIASIS [None]
  - EPISTAXIS [None]
  - FLUID IMBALANCE [None]
  - HAEMATOCHEZIA [None]
  - HEADACHE [None]
  - HYPERBILIRUBINAEMIA [None]
  - NEUTROPHIL COUNT DECREASED [None]
  - PLATELET COUNT DECREASED [None]
  - PLEURAL EFFUSION [None]
  - PNEUMONIA [None]
  - PULMONARY OEDEMA [None]
  - RESPIRATORY DISTRESS [None]
  - STAPHYLOCOCCAL INFECTION [None]
  - TUMOUR LYSIS SYNDROME [None]
  - WHITE BLOOD CELL COUNT DECREASED [None]
